FAERS Safety Report 9440064 (Version 3)
Quarter: 2016Q2

REPORT INFORMATION
  Report Type: Report from Study
  Country: US (occurrence: US)
  Receive Date: 20130805
  Receipt Date: 20160506
  Transmission Date: 20160815
  Serious: Yes (Other)
  Sender: FDA-Public Use
  Company Number: US-ASTELLAS-2013US008154

PATIENT
  Sex: Female

DRUGS (5)
  1. ERLOTINIB [Suspect]
     Active Substance: ERLOTINIB
     Indication: RECTAL CANCER
     Route: 065
  2. ERLOTINIB [Suspect]
     Active Substance: ERLOTINIB
     Indication: COLON CANCER
     Route: 065
  3. ERLOTINIB [Suspect]
     Active Substance: ERLOTINIB
     Route: 065
  4. ERLOTINIB [Suspect]
     Active Substance: ERLOTINIB
     Route: 065
  5. ERLOTINIB [Suspect]
     Active Substance: ERLOTINIB
     Route: 065
     Dates: start: 2008

REACTIONS (11)
  - Peripheral coldness [Unknown]
  - Swollen tongue [Recovered/Resolved]
  - Tinnitus [Recovered/Resolved]
  - Eye haemorrhage [Recovered/Resolved]
  - Hypoaesthesia oral [Unknown]
  - Neuropathy peripheral [Unknown]
  - Dysarthria [Unknown]
  - Hypoaesthesia [Unknown]
  - Off label use [Unknown]
  - Glossodynia [Unknown]
  - Stomatitis [Unknown]
